FAERS Safety Report 12386972 (Version 3)
Quarter: 2016Q3

REPORT INFORMATION
  Report Type: Report from Study
  Country: DE (occurrence: CH)
  Receive Date: 20160519
  Receipt Date: 20160722
  Transmission Date: 20161109
  Serious: Yes (Death, Other)
  Sender: FDA-Public Use
  Company Number: DE-REGENERON PHARMACEUTICALS, INC.-2016-17318

PATIENT

DRUGS (11)
  1. MARCOUMAR [Concomitant]
     Active Substance: PHENPROCOUMON
  2. ACETAMINOPHEN + COD. PHOSP. [Concomitant]
     Active Substance: ACETAMINOPHEN\CODEINE PHOSPHATE
  3. TRIATEC [Concomitant]
     Active Substance: RAMIPRIL
  4. ACIDUM FOLICUM [Concomitant]
     Active Substance: FOLIC ACID
  5. EYLEA [Suspect]
     Active Substance: AFLIBERCEPT
     Indication: NEOVASCULAR AGE-RELATED MACULAR DEGENERATION
     Dosage: 3 INJECTIONS AT 2 MG EVERY 4 WEEKS
     Route: 031
  6. NEO-MERCAZOLE [Concomitant]
     Active Substance: CARBIMAZOLE
  7. NOVALGIN [Concomitant]
     Active Substance: METAMIZOLE SODIUM
  8. EYLEA [Suspect]
     Active Substance: AFLIBERCEPT
     Dosage: 5 INJECTIONS
     Route: 031
  9. EYLEA [Suspect]
     Active Substance: AFLIBERCEPT
     Dosage: STATUS POST 9 X EYLEA
     Dates: end: 20131007
  10. DIGOXIN. [Concomitant]
     Active Substance: DIGOXIN
     Indication: PRODUCT USED FOR UNKNOWN INDICATION
  11. TORASEM [Concomitant]
     Active Substance: TORSEMIDE

REACTIONS (1)
  - Death [Fatal]

NARRATIVE: CASE EVENT DATE: 20131112
